FAERS Safety Report 8326166-9 (Version None)
Quarter: 2012Q2

REPORT INFORMATION
  Report Type: 
  Country: None (occurrence: None)
  Receive Date: 20120427
  Receipt Date: 20120412
  Transmission Date: 20120825
  Serious: Yes (Hospitalization)
  Sender: FDA-Public Use
  Company Number: 2012MA005021

PATIENT
  Age: 79 Year
  Sex: Male

DRUGS (2)
  1. GEMCITABINE HYDROCHLORIDE [Suspect]
     Indication: NON-SMALL CELL LUNG CANCER STAGE IIIB
     Dosage: 1000 MG/M**2;X1;IV
     Route: 042
  2. CARBOPLATIN/ PACLITAXEL [Concomitant]

REACTIONS (5)
  - PYREXIA [None]
  - INFLAMMATION [None]
  - RECALL PHENOMENON [None]
  - DIARRHOEA [None]
  - ERYTHEMA [None]
